FAERS Safety Report 21707835 (Version 2)
Quarter: 2023Q2

REPORT INFORMATION
  Report Type: Spontaneous
  Country: US (occurrence: US)
  Receive Date: 20221209
  Receipt Date: 20230410
  Transmission Date: 20230722
  Serious: No
  Sender: FDA-Public Use
  Company Number: US-MYLANLABS-2022M1135973

PATIENT
  Sex: Female

DRUGS (7)
  1. GABAPENTIN [Suspect]
     Active Substance: GABAPENTIN
     Indication: Pain
     Dosage: UNK
     Route: 065
  2. REMODULIN [Concomitant]
     Active Substance: TREPROSTINIL
     Indication: Pulmonary arterial hypertension
     Dosage: 0.0035 MICROGRAM PER KILOGRAM
     Route: 058
     Dates: start: 20220913
  3. REMODULIN [Concomitant]
     Active Substance: TREPROSTINIL
     Dosage: 0.0109 MICROGRAM PER KILOGRAM
     Route: 058
     Dates: start: 2022
  4. REMODULIN [Concomitant]
     Active Substance: TREPROSTINIL
     Dosage: 0.0128 MICROGRAM PER KILOGRAM
     Route: 058
     Dates: start: 2022
  5. REMODULIN [Concomitant]
     Active Substance: TREPROSTINIL
     Dosage: 0.01460 MICROGRAM PER KILOGRAM
     Route: 058
     Dates: start: 2022
  6. REMODULIN [Concomitant]
     Active Substance: TREPROSTINIL
     Dosage: 0.0184 MICROGRAM PER MICROGRAM PER KILOGRAM
     Route: 058
     Dates: start: 2022
  7. REMODULIN [Concomitant]
     Active Substance: TREPROSTINIL
     Dosage: 0.0203 MICROGRAM PER MICROGRAM PER KILOGRAM
     Route: 058
     Dates: start: 2022

REACTIONS (1)
  - Drug ineffective for unapproved indication [Unknown]
